FAERS Safety Report 13830878 (Version 1)
Quarter: 2017Q3

REPORT INFORMATION
  Report Type: Report from Study
  Country: GR (occurrence: GR)
  Receive Date: 20170803
  Receipt Date: 20170803
  Transmission Date: 20171127
  Serious: Yes (Hospitalization, Other)
  Sender: FDA-Public Use
  Company Number: GR-B.I. PHARMACEUTICALS,INC./RIDGEFIELD-2017-BI-042454

PATIENT

DRUGS (1)
  1. PRADIF T [Suspect]
     Active Substance: TAMSULOSIN HYDROCHLORIDE
     Indication: PRODUCT USED FOR UNKNOWN INDICATION
     Route: 065

REACTIONS (6)
  - Eye disorder [Unknown]
  - Lens capsulotomy [Unknown]
  - Iridocele [Unknown]
  - Posterior capsule rupture [Unknown]
  - Open globe injury [Unknown]
  - Vitreous loss [Unknown]
